FAERS Safety Report 10921986 (Version 1)
Quarter: 2015Q1

REPORT INFORMATION
  Report Type: Spontaneous
  Country: ES (occurrence: None)
  Receive Date: 20150312
  Receipt Date: 20150312
  Transmission Date: 20150721
  Serious: Yes (Death, Other)
  Sender: FDA-Public Use
  Company Number: FK201501146

PATIENT
  Age: 67 Year
  Sex: Male

DRUGS (3)
  1. COTRIMOXAZOLE [Suspect]
     Active Substance: SULFAMETHOXAZOLE\TRIMETHOPRIM
     Indication: ANTIFUNGAL PROPHYLAXIS
  2. CASPOFUNGIN [Suspect]
     Active Substance: CASPOFUNGIN
     Indication: ANTIFUNGAL PROPHYLAXIS
  3. GANCICLOVIR FOR INJECTION (MANUFACTURER UNKNOWN) (GANCICLOVIR FOR INJECTION) GANCICLOVIR FOR INJECTION [Suspect]
     Active Substance: GANCICLOVIR
     Indication: ANTIFUNGAL PROPHYLAXIS

REACTIONS (3)
  - Systemic candida [None]
  - Septic shock [None]
  - Pancytopenia [None]
